FAERS Safety Report 5936986-3 (Version None)
Quarter: 2008Q4

REPORT INFORMATION
  Report Type: 
  Country: None (occurrence: None)
  Receive Date: 20081031
  Receipt Date: 20080930
  Transmission Date: 20090506
  Serious: No
  Sender: FDA-Public Use
  Company Number: US-BAYER-200834635NA

PATIENT
  Sex: Female

DRUGS (1)
  1. CIPRO XR [Suspect]
     Indication: CYSTITIS

REACTIONS (1)
  - CYSTITIS [None]
